FAERS Safety Report 5939437-8 (Version None)
Quarter: 2008Q4

REPORT INFORMATION
  Report Type: 
  Country: None (occurrence: None)
  Receive Date: 20081029
  Receipt Date: 20081014
  Transmission Date: 20090506
  Serious: Yes (Death, Hospitalization)
  Sender: FDA-Public Use
  Company Number: 20416

PATIENT
  Age: 18 Year
  Sex: Female
  Weight: 45 kg

DRUGS (5)
  1. DOXORUBICIN HCL [Suspect]
  2. VINCRISTINE [Suspect]
  3. CYCLOPHOSPHAMIDE [Suspect]
  4. PREDNISOLONE [Suspect]
  5. RITUXIMAB [Suspect]

REACTIONS (4)
  - CARDIO-RESPIRATORY ARREST [None]
  - CYTOTOXIC CARDIOMYOPATHY [None]
  - IDIOSYNCRATIC DRUG REACTION [None]
  - UNEVALUABLE EVENT [None]
